FAERS Safety Report 8519256-9 (Version None)
Quarter: 2012Q3

REPORT INFORMATION
  Report Type: 
  Country: None (occurrence: None)
  Receive Date: 20120718
  Receipt Date: 20120709
  Transmission Date: 20120928
  Serious: Yes (Hospitalization)
  Sender: FDA-Public Use
  Company Number: US-VERTEX PHARMACEUTICALS INC.-AE-2012-010162

PATIENT
  Sex: Female

DRUGS (1)
  1. INCIVEK [Suspect]
     Indication: HEPATITIS C
     Route: 048
     Dates: start: 20110904

REACTIONS (6)
  - RENAL DISORDER [None]
  - DIARRHOEA [None]
  - BLOOD SODIUM DECREASED [None]
  - URINARY TRACT INFECTION [None]
  - PANCREATITIS [None]
  - DYSPHAGIA [None]
